FAERS Safety Report 24900256 (Version 4)
Quarter: 2025Q2

REPORT INFORMATION
  Report Type: Report from Study
  Country: US (occurrence: US)
  Receive Date: 20250129
  Receipt Date: 20250612
  Transmission Date: 20250716
  Serious: Yes (Hospitalization, Other)
  Sender: ABBVIE
  Company Number: US-ABBVIE-6105527

PATIENT
  Age: 62 Year
  Sex: Male

DRUGS (1)
  1. SKYRIZI [Suspect]
     Active Substance: RISANKIZUMAB-RZAA
     Indication: Psoriasis
     Route: 058
     Dates: start: 20230405

REACTIONS (7)
  - Fall [Recovered/Resolved]
  - Fall [Recovered/Resolved]
  - Rib fracture [Recovering/Resolving]
  - Spinal osteoarthritis [Unknown]
  - Fall [Recovered/Resolved]
  - Malaise [Unknown]
  - Spinal operation [Unknown]

NARRATIVE: CASE EVENT DATE: 20250101
